FAERS Safety Report 11895682 (Version 1)
Quarter: 2016Q1

REPORT INFORMATION
  Report Type: Spontaneous
  Country: US (occurrence: US)
  Receive Date: 20160107
  Receipt Date: 20160107
  Transmission Date: 20160526
  Serious: No
  Sender: FDA-Public Use
  Company Number: CHPA2016US000480

PATIENT
  Sex: Female

DRUGS (2)
  1. VOLTAREN [Suspect]
     Active Substance: DICLOFENAC SODIUM
     Indication: PSORIATIC ARTHROPATHY
     Dosage: UNK
     Route: 061
  2. METHOTREXATE [Concomitant]
     Active Substance: METHOTREXATE
     Indication: PSORIATIC ARTHROPATHY
     Route: 065

REACTIONS (2)
  - Therapeutic response unexpected [Unknown]
  - Product use issue [Unknown]
